FAERS Safety Report 14656691 (Version 1)
Quarter: 2018Q1

REPORT INFORMATION
  Report Type: Spontaneous
  Country: US (occurrence: US)
  Receive Date: 20180319
  Receipt Date: 20180319
  Transmission Date: 20180509
  Serious: Yes (Other)
  Sender: FDA-Public Use
  Company Number: US-MYLANLABS-2018M1016761

PATIENT
  Sex: Female
  Weight: 68.2 kg

DRUGS (11)
  1. PROPRANOLOL [Suspect]
     Active Substance: PROPRANOLOL HYDROCHLORIDE
     Indication: HYPERTENSION
     Dosage: 40 MG, QD
     Route: 048
     Dates: end: 20180110
  2. BIOTIN [Concomitant]
     Active Substance: BIOTIN
     Indication: SUPPLEMENTATION THERAPY
  3. FISH OIL [Concomitant]
     Active Substance: FISH OIL
     Indication: SUPPLEMENTATION THERAPY
  4. TURMERIC CURCUMIN [Suspect]
     Active Substance: HERBALS\TURMERIC
     Indication: SUPPLEMENTATION THERAPY
     Dosage: 500 MG, QD
     Route: 048
     Dates: end: 20180110
  5. PROPRANOLOL [Suspect]
     Active Substance: PROPRANOLOL HYDROCHLORIDE
     Dosage: 20 MG, QD
     Route: 048
  6. IBUPROFEN. [Concomitant]
     Active Substance: IBUPROFEN
     Indication: PRODUCT USED FOR UNKNOWN INDICATION
  7. TURMERIC CURCUMIN [Suspect]
     Active Substance: HERBALS\TURMERIC
     Indication: SUPPLEMENTATION THERAPY
     Dosage: 1000 MG, QD
     Route: 048
     Dates: start: 201705, end: 20180110
  8. SIMVASTATIN. [Concomitant]
     Active Substance: SIMVASTATIN
     Indication: PRODUCT USED FOR UNKNOWN INDICATION
  9. CRESTOR [Concomitant]
     Active Substance: ROSUVASTATIN CALCIUM
     Indication: PRODUCT USED FOR UNKNOWN INDICATION
  10. TURMERIC CURCUMIN [Suspect]
     Active Substance: HERBALS\TURMERIC
     Dosage: UNK
     Dates: start: 20180110
  11. COENZYME Q10 [Concomitant]
     Active Substance: UBIDECARENONE
     Indication: SUPPLEMENTATION THERAPY

REACTIONS (22)
  - Fatigue [Unknown]
  - Tenderness [Unknown]
  - Diarrhoea [Recovered/Resolved]
  - Head injury [Recovered/Resolved]
  - Fear [Unknown]
  - Asthenia [Unknown]
  - Anorectal discomfort [Unknown]
  - Anal incontinence [Recovered/Resolved]
  - Balance disorder [Unknown]
  - Fall [Recovered/Resolved]
  - Contusion [Recovered/Resolved]
  - Constipation [Unknown]
  - Faecaloma [Recovered/Resolved]
  - Weight decreased [Unknown]
  - Reaction to excipient [Unknown]
  - Chest injury [Recovered/Resolved]
  - Dizziness [Unknown]
  - Hypotension [Recovered/Resolved]
  - Injury [Recovered/Resolved]
  - Hyperhidrosis [Unknown]
  - Gastrointestinal sounds abnormal [Unknown]
  - Apathy [Unknown]

NARRATIVE: CASE EVENT DATE: 2017
